FAERS Safety Report 7516918-7 (Version None)
Quarter: 2011Q2

REPORT INFORMATION
  Report Type: 
  Country: None (occurrence: None)
  Receive Date: 20110601
  Receipt Date: 20110524
  Transmission Date: 20111010
  Serious: No
  Sender: FDA-Public Use
  Company Number: ES-SANOFI-AVENTIS-2011SA024040

PATIENT
  Age: 45 Year
  Sex: Male

DRUGS (6)
  1. LANTUS [Suspect]
     Indication: DIABETES MELLITUS
     Route: 051
  2. APIDRA SOLOSTAR [Suspect]
     Indication: DIABETES MELLITUS
  3. APIDRA SOLOSTAR [Suspect]
     Route: 051
     Dates: start: 20110401, end: 20110401
  4. SOLOSTAR [Suspect]
     Dates: start: 20110401, end: 20110401
  5. SOLOSTAR [Suspect]
     Indication: DIABETES MELLITUS
  6. SOLOSTAR [Suspect]

REACTIONS (2)
  - HYPOGLYCAEMIA [None]
  - WRONG DRUG ADMINISTERED [None]
